FAERS Safety Report 21245142 (Version 2)
Quarter: 2022Q3

REPORT INFORMATION
  Report Type: Report from Study
  Country: GR (occurrence: GR)
  Receive Date: 20220823
  Receipt Date: 20220930
  Transmission Date: 20221027
  Serious: Yes (Death, Hospitalization, Other)
  Sender: FDA-Public Use
  Company Number: GR-TAKEDA-2022TUS058557

PATIENT
  Age: 62 Year
  Sex: Male
  Weight: 80 kg

DRUGS (6)
  1. MOBOCERTINIB [Suspect]
     Active Substance: MOBOCERTINIB
     Indication: Non-small cell lung cancer
     Dosage: 160 MILLIGRAM, QD
     Route: 048
     Dates: start: 20220203, end: 20220215
  2. MOBOCERTINIB [Suspect]
     Active Substance: MOBOCERTINIB
     Dosage: 120 MILLIGRAM, QD
     Route: 048
     Dates: start: 20220311, end: 20220410
  3. KEPPRA [Concomitant]
     Active Substance: LEVETIRACETAM
     Indication: Metastases to central nervous system
     Dosage: 500 MILLIGRAM, BID
     Route: 065
     Dates: start: 202201, end: 202204
  4. DEXAMETHASONE [Concomitant]
     Active Substance: DEXAMETHASONE
     Indication: Metastases to central nervous system
     Dosage: 10 MILLILITER, BID
     Route: 065
     Dates: start: 202201, end: 202202
  5. ENALAPRIL MALEATE\NITRENDIPINE [Concomitant]
     Active Substance: ENALAPRIL MALEATE\NITRENDIPINE
     Dosage: UNK, QD
     Route: 065
     Dates: start: 202112, end: 202204
  6. ENOXAPARIN SODIUM [Concomitant]
     Active Substance: ENOXAPARIN SODIUM
     Dosage: UNK UNK, BID
     Route: 065
     Dates: start: 202202, end: 202204

REACTIONS (2)
  - Non-small cell lung cancer [Fatal]
  - Diarrhoea [Unknown]

NARRATIVE: CASE EVENT DATE: 20220515
